FAERS Safety Report 12298957 (Version 1)
Quarter: 2016Q2

REPORT INFORMATION
  Report Type: Spontaneous
  Country: CA (occurrence: CA)
  Receive Date: 20160425
  Receipt Date: 20160425
  Transmission Date: 20160815
  Serious: Yes (Other)
  Sender: FDA-Public Use
  Company Number: CA-ROCHE-1743051

PATIENT
  Sex: Female

DRUGS (8)
  1. DIAZEPAM. [Suspect]
     Active Substance: DIAZEPAM
     Indication: PRODUCT USED FOR UNKNOWN INDICATION
     Route: 065
  2. BUPRENORPHINE HYDROCHLORIDE. [Suspect]
     Active Substance: BUPRENORPHINE HYDROCHLORIDE
     Route: 065
  3. VYVANSE [Suspect]
     Active Substance: LISDEXAMFETAMINE DIMESYLATE
     Indication: PRODUCT USED FOR UNKNOWN INDICATION
     Route: 065
  4. BUPRENORPHINE HYDROCHLORIDE. [Suspect]
     Active Substance: BUPRENORPHINE HYDROCHLORIDE
     Indication: DRUG DEPENDENCE
     Dosage: THERAPY DURATION:  2.0 DAY(S)
     Route: 065
  5. NALOXONE HYDROCHLORIDE. [Suspect]
     Active Substance: NALOXONE HYDROCHLORIDE
     Indication: DRUG DEPENDENCE
     Route: 065
  6. NALOXONE HYDROCHLORIDE. [Suspect]
     Active Substance: NALOXONE HYDROCHLORIDE
     Route: 065
  7. ABILIFY [Suspect]
     Active Substance: ARIPIPRAZOLE
     Indication: PRODUCT USED FOR UNKNOWN INDICATION
     Route: 065
  8. NICOTINE. [Suspect]
     Active Substance: NICOTINE
     Indication: PRODUCT USED FOR UNKNOWN INDICATION
     Route: 065

REACTIONS (3)
  - Caesarean section [Recovered/Resolved]
  - Premature delivery [Recovered/Resolved]
  - Maternal exposure during pregnancy [Unknown]
